FAERS Safety Report 12246942 (Version 2)
Quarter: 2016Q2

REPORT INFORMATION
  Report Type: Spontaneous
  Country: JP (occurrence: JP)
  Receive Date: 20160407
  Receipt Date: 20160426
  Transmission Date: 20160815
  Serious: Yes (Hospitalization)
  Sender: FDA-Public Use
  Company Number: JP-GLAXOSMITHKLINE-JP2016JPN045752

PATIENT

DRUGS (3)
  1. ACYCLOVIR. [Suspect]
     Active Substance: ACYCLOVIR
     Indication: VARICELLA
     Dosage: 500 MG, TID
     Route: 064
  2. ACYCLOVIR. [Suspect]
     Active Substance: ACYCLOVIR
     Indication: CONGENITAL VARICELLA INFECTION
  3. GLUCOSE [Concomitant]
     Active Substance: DEXTROSE
     Dosage: UNK

REACTIONS (5)
  - Foetal exposure during pregnancy [Unknown]
  - Erythema [Recovered/Resolved]
  - Papule [Recovered/Resolved]
  - Hypoglycaemia [Unknown]
  - Tachypnoea [Recovering/Resolving]
